FAERS Safety Report 9782189 (Version 2)
Quarter: 2014Q1

REPORT INFORMATION
  Report Type: Spontaneous
  Country: FR (occurrence: FR)
  Receive Date: 20131226
  Receipt Date: 20140113
  Transmission Date: 20141002
  Serious: Yes (Other)
  Sender: FDA-Public Use
  Company Number: FR-RANBAXY-2013RR-76482

PATIENT
  Sex: Female

DRUGS (1)
  1. IBUPROFEN [Suspect]
     Indication: MENOMETRORRHAGIA
     Dosage: 200 MG
     Route: 065

REACTIONS (1)
  - Pancytopenia [Recovered/Resolved]
